FAERS Safety Report 4647766-3 (Version None)
Quarter: 2005Q2

REPORT INFORMATION
  Report Type: 
  Country: None (occurrence: None)
  Receive Date: 20050426
  Receipt Date: 20050418
  Transmission Date: 20051028
  Serious: Yes (Death, Life-Threatening)
  Sender: FDA-Public Use
  Company Number: 2005AP02365

PATIENT
  Sex: Male

DRUGS (1)
  1. IRESSA [Suspect]
     Indication: NON-SMALL CELL LUNG CANCER
     Dosage: 250 MG DAILY; PO
     Route: 048
     Dates: start: 20050308

REACTIONS (2)
  - ACUTE RESPIRATORY FAILURE [None]
  - INTERSTITIAL LUNG DISEASE [None]
